FAERS Safety Report 6029445-3 (Version None)
Quarter: 2008Q4

REPORT INFORMATION
  Report Type: 
  Country: None (occurrence: None)
  Receive Date: 20081222
  Receipt Date: 20080827
  Transmission Date: 20090506
  Serious: No
  Sender: FDA-Public Use
  Company Number: ALL1-2008-02438

PATIENT
  Sex: Male

DRUGS (1)
  1. VYVANSE [Suspect]
     Dosage: 70 MG, 2X/DAY:QD, ORAL ; 70 MG, 1X/DAY:QD, ORAL
     Route: 048

REACTIONS (3)
  - INAPPROPRIATE SCHEDULE OF DRUG ADMINISTRATION [None]
  - OVERDOSE [None]
  - THINKING ABNORMAL [None]
